FAERS Safety Report 8067171-X (Version None)
Quarter: 2012Q1

REPORT INFORMATION
  Report Type: 
  Country: None (occurrence: None)
  Receive Date: 20120124
  Receipt Date: 20120120
  Transmission Date: 20120608
  Serious: Yes (Hospitalization)
  Sender: FDA-Public Use
  Company Number: US-GLAXOSMITHKLINE-A0899115A

PATIENT
  Age: 63 Year
  Sex: Female

DRUGS (2)
  1. AVANDIA [Suspect]
     Indication: DIABETES MELLITUS
     Route: 048
     Dates: start: 20050101, end: 20081101
  2. AVANDAMET [Suspect]
     Indication: DIABETES MELLITUS
     Route: 048
     Dates: start: 20031107, end: 20041201

REACTIONS (4)
  - OBSTRUCTION [None]
  - CORONARY ARTERY STENOSIS [None]
  - MYOCARDIAL INFARCTION [None]
  - STENT PLACEMENT [None]
